FAERS Safety Report 20906970 (Version 2)
Quarter: 2022Q2

REPORT INFORMATION
  Report Type: Report from Study
  Country: GB (occurrence: GB)
  Receive Date: 20220602
  Receipt Date: 20220617
  Transmission Date: 20220721
  Serious: Yes (Other)
  Sender: FDA-Public Use
  Company Number: GB-IPSEN Group, Research and Development-2022-01675

PATIENT
  Age: 83 Year
  Sex: Female

DRUGS (1)
  1. LANREOTIDE ACETATE [Suspect]
     Active Substance: LANREOTIDE ACETATE
     Indication: Neuroendocrine tumour
     Dosage: 120MG/0.5ML
     Route: 058

REACTIONS (6)
  - Parkinson^s disease [Unknown]
  - Malaise [Unknown]
  - Asthenia [Unknown]
  - Weight decreased [Unknown]
  - Injection site discomfort [Unknown]
  - Off label use [Unknown]
